FAERS Safety Report 19835975 (Version 1)
Quarter: 2021Q3

REPORT INFORMATION
  Report Type: Spontaneous
  Country: FR (occurrence: FR)
  Receive Date: 20210916
  Receipt Date: 20210916
  Transmission Date: 20211014
  Serious: Yes (Other)
  Sender: FDA-Public Use
  Company Number: FR-SUN PHARMACEUTICAL INDUSTRIES LTD-2021RR-310739

PATIENT
  Age: 82 Year
  Sex: Male
  Weight: 100 kg

DRUGS (10)
  1. METFORMINE [Concomitant]
     Active Substance: METFORMIN HYDROCHLORIDE
     Indication: TYPE 2 DIABETES MELLITUS
     Dosage: 2000 MILLIGRAM, DAILY
     Route: 048
  2. IRBESARTAN. [Concomitant]
     Active Substance: IRBESARTAN
     Indication: HYPERTENSION
     Dosage: 300 MILLIGRAM, DAILY
     Route: 048
  3. DIFFU K, CAPSULE [Concomitant]
     Active Substance: POTASSIUM CHLORIDE
     Indication: HYPOKALAEMIA
     Dosage: 2 DOSAGE FORM, DAILY
     Route: 048
  4. REPAGLINIDE. [Suspect]
     Active Substance: REPAGLINIDE
     Indication: TYPE 2 DIABETES MELLITUS
     Dosage: 1 MG 3X / DAY
     Route: 048
     Dates: end: 20210811
  5. PRAVASTATIN ACCORD [Concomitant]
     Active Substance: PRAVASTATIN
     Indication: CAROTID ARTERIOSCLEROSIS
     Dosage: 40 MILLIGRAM, DAILY
     Route: 048
  6. CLOPIDOGREL (BESILATE) [Concomitant]
     Active Substance: CLOPIDOGREL BESILATE
     Indication: CEREBROVASCULAR ACCIDENT PROPHYLAXIS
     Dosage: 1 DOSAGE FORM, DAILY
     Route: 048
  7. ONBREZ BREEZHALER 300 MICROGRAMS INHALATION POWDER, HARD CAPSULE [Concomitant]
     Indication: CHRONIC RESPIRATORY FAILURE
     Dosage: 1 DOSAGE FORM, DAILY
     Route: 055
  8. SEEBRI BREEZHALER 44 MICROGRAMS INHALATION POWDER, HARD CAPSULE [Concomitant]
     Indication: CHRONIC RESPIRATORY FAILURE
     Dosage: 1 DOSAGE FORM, DAILY
     Route: 055
  9. ADENURIC 80 MG, COATED TABLET [Concomitant]
     Indication: HYPERURICAEMIA
     Dosage: 1 DOSAGE FORM, DAILY
     Route: 048
  10. FUROSEMIDE. [Concomitant]
     Active Substance: FUROSEMIDE
     Indication: HYPERTENSION
     Dosage: 40 MILLIGRAM, DAILY
     Route: 048

REACTIONS (1)
  - Hypoglycaemia [Recovered/Resolved]

NARRATIVE: CASE EVENT DATE: 20210809
